FAERS Safety Report 25525336 (Version 2)
Quarter: 2025Q3

REPORT INFORMATION
  Report Type: Spontaneous
  Country: EU (occurrence: EU)
  Receive Date: 20250707
  Receipt Date: 20250721
  Transmission Date: 20251021
  Serious: Yes (Life-Threatening, Hospitalization, Other)
  Sender: NOVARTIS
  Company Number: EU-002147023-NVSC2025DE107269

PATIENT
  Sex: Male
  Weight: 75 kg

DRUGS (5)
  1. CERTICAN [Suspect]
     Active Substance: EVEROLIMUS
     Indication: Heart transplant
     Dosage: UNK, BID (0,75 -1MG BASED ON LEVELS)
     Route: 048
     Dates: start: 20160316, end: 2025
  2. CERTICAN [Suspect]
     Active Substance: EVEROLIMUS
     Dosage: UNK, BID (0,75 -1MG BASED ON LEVELS)
     Route: 048
     Dates: start: 2025
  3. CYCLOSPORINE [Suspect]
     Active Substance: CYCLOSPORINE
     Indication: Heart transplant
     Dosage: UNK, BID (75 -80MG BASED ON LEVELS)
     Route: 048
     Dates: start: 20160316
  4. PREDNISOLONE [Concomitant]
     Active Substance: PREDNISOLONE
     Indication: Heart transplant
     Route: 065
     Dates: start: 201603
  5. PREDNISOLONE [Concomitant]
     Active Substance: PREDNISOLONE
     Route: 065
     Dates: start: 2025

REACTIONS (7)
  - Appendicitis perforated [Recovered/Resolved]
  - Impaired healing [Recovered/Resolved]
  - White blood cell count increased [Recovered/Resolved]
  - C-reactive protein decreased [Recovered/Resolved]
  - Subcutaneous abscess [Recovered/Resolved]
  - Back pain [Unknown]
  - Muscle spasms [Unknown]

NARRATIVE: CASE EVENT DATE: 20160101
